FAERS Safety Report 8812527 (Version 1)
Quarter: 2012Q4

REPORT INFORMATION
  Report Type: 
  Country: US (occurrence: US)
  Receive Date: 20120927
  Receipt Date: 20120927
  Transmission Date: 20130627
  Serious: No
  Sender: FDA-Public Use
  Company Number: US-JNJFOC-20120904601

PATIENT
  Age: 43 None
  Sex: Female
  Weight: 51.71 kg

DRUGS (3)
  1. RISPERIDONE [Suspect]
     Indication: SCHIZOAFFECTIVE DISORDER BIPOLAR TYPE
     Route: 048
     Dates: start: 199407
  2. INVEGA SUSTENNA [Suspect]
     Indication: SCHIZOAFFECTIVE DISORDER BIPOLAR TYPE
     Route: 030
     Dates: start: 2006
  3. DEPAKOTE [Suspect]
     Indication: PRODUCT USED FOR UNKNOWN INDICATION
     Route: 048
     Dates: end: 2009

REACTIONS (7)
  - Irregular sleep phase [Not Recovered/Not Resolved]
  - Social avoidant behaviour [Not Recovered/Not Resolved]
  - Hostility [Not Recovered/Not Resolved]
  - Disturbance in social behaviour [Not Recovered/Not Resolved]
  - Dizziness [Not Recovered/Not Resolved]
  - Cough [Not Recovered/Not Resolved]
  - Product quality issue [Unknown]
